FAERS Safety Report 10791097 (Version 1)
Quarter: 2015Q1

REPORT INFORMATION
  Report Type: Spontaneous
  Country: US (occurrence: US)
  Receive Date: 20150212
  Receipt Date: 20150212
  Transmission Date: 20150721
  Serious: No
  Sender: FDA-Public Use
  Company Number: US-GLAXOSMITHKLINE-US2015GSK019271

PATIENT
  Age: 27 Year
  Sex: Male

DRUGS (4)
  1. MORPHINE SULFATE ER [Concomitant]
     Active Substance: MORPHINE SULFATE
  2. OXYCODONE [Concomitant]
     Active Substance: OXYCODONE
  3. VOTRIENT [Suspect]
     Active Substance: PAZOPANIB HYDROCHLORIDE
     Indication: SYNOVIAL SARCOMA
     Dosage: 800 MG, QD
     Route: 048
     Dates: start: 20150202
  4. PRILOSEC [Concomitant]
     Active Substance: OMEPRAZOLE MAGNESIUM

REACTIONS (2)
  - Chest pain [Not Recovered/Not Resolved]
  - Vomiting [Not Recovered/Not Resolved]

NARRATIVE: CASE EVENT DATE: 20150208
